FAERS Safety Report 9547421 (Version 1)
Quarter: 2013Q3

REPORT INFORMATION
  Report Type: Spontaneous
  Country: FR (occurrence: FR)
  Receive Date: 20130924
  Receipt Date: 20130924
  Transmission Date: 20140515
  Serious: Yes (Other)
  Sender: FDA-Public Use
  Company Number: PHHY2013FR104190

PATIENT
  Age: 74 Year
  Sex: Male

DRUGS (2)
  1. PYRIDOSTIGMINE [Suspect]
     Indication: MYASTHENIA GRAVIS
  2. IMMUNOGLOBULINS [Concomitant]
     Indication: MYASTHENIA GRAVIS
     Route: 042

REACTIONS (2)
  - Asthma [Recovering/Resolving]
  - Dyspnoea [Unknown]
